FAERS Safety Report 7885217-6 (Version None)
Quarter: 2011Q4

REPORT INFORMATION
  Report Type: 
  Country: None (occurrence: None)
  Receive Date: 20111102
  Receipt Date: 20111026
  Transmission Date: 20120403
  Serious: Yes (Other)
  Sender: FDA-Public Use
  Company Number: PHHY2011VE95741

PATIENT
  Sex: Female

DRUGS (3)
  1. ZOLEDRONOC ACID [Suspect]
     Indication: OSTEOPOROSIS
     Dosage: 5 MG, ONCE A YEAR
     Route: 042
     Dates: start: 20080101
  2. ENALAPRIL [Concomitant]
     Indication: BLOOD PRESSURE
     Dosage: 20 MG, QD
  3. LYRICA [Concomitant]
     Indication: PAIN
     Dosage: 75 MG, QD

REACTIONS (2)
  - SPINAL COLUMN STENOSIS [None]
  - BONE PAIN [None]
